FAERS Safety Report 21656979 (Version 1)
Quarter: 2022Q4

REPORT INFORMATION
  Report Type: Report from Study
  Country: US (occurrence: US)
  Receive Date: 20221129
  Receipt Date: 20221129
  Transmission Date: 20230113
  Serious: Yes (Hospitalization, Other)
  Sender: FDA-Public Use
  Company Number: US-MYLANLABS-2022M1133569

PATIENT

DRUGS (2)
  1. GEMCITABINE [Suspect]
     Active Substance: GEMCITABINE
     Indication: Neoplasm malignant
     Dosage: 1000 MILLIGRAM/SQ. METER, CYCLE; ON DAYS 1, 8, 15 OF A 28 DAY TREATMENT CYCLE; INTRAVENOUS INFUSION
     Route: 042
  2. ALISERTIB [Suspect]
     Active Substance: ALISERTIB
     Indication: Neoplasm malignant
     Dosage: 20 MILLIGRAM, CYCLE; 20 MG TWICE A DAY ON DAYS 1-3, 8-10, AND 15-17 OF A 28 DAY TREATMENT CYCLE
     Route: 048

REACTIONS (4)
  - Pericardial effusion [Unknown]
  - Cardiac tamponade [Unknown]
  - Pleural effusion [Unknown]
  - Dyspnoea [Unknown]
